FAERS Safety Report 16975130 (Version 1)
Quarter: 2019Q4

REPORT INFORMATION
  Report Type: Spontaneous
  Country: US (occurrence: US)
  Receive Date: 20191030
  Receipt Date: 20191030
  Transmission Date: 20200122
  Serious: Yes (Other)
  Sender: FDA-Public Use
  Company Number: US-SA-2019SA297787

PATIENT
  Age: 67 Year
  Sex: Female
  Weight: 97.96 kg

DRUGS (10)
  1. HEPARIN [Concomitant]
     Active Substance: HEPARIN SODIUM
     Indication: FLUSHING
     Dosage: 100 UN/ML, UNK
     Route: 042
     Dates: start: 20190911
  2. STERILE WATER [Concomitant]
     Active Substance: WATER
     Dosage: 1 EACH, UNK
     Route: 042
     Dates: start: 20190911
  3. SODIUM CHLORIDE. [Concomitant]
     Active Substance: SODIUM CHLORIDE
     Indication: FLUSHING
     Dosage: 0.90 %, UNK
     Route: 042
     Dates: start: 20190911
  4. EPINEPHRINE. [Concomitant]
     Active Substance: EPINEPHRINE
     Indication: ANAPHYLACTIC REACTION
     Dosage: 0.3 MG, PRN
     Route: 030
     Dates: start: 20190911
  5. CEREZYME [Suspect]
     Active Substance: IMIGLUCERASE
     Indication: GAUCHER^S DISEASE
     Dosage: 2800 UNITS, QOW
     Route: 042
     Dates: start: 20190910
  6. ELIQUIS [Concomitant]
     Active Substance: APIXABAN
     Dosage: 1 DF, QD
     Route: 048
     Dates: start: 20190816
  7. NYSTOP [Concomitant]
     Active Substance: NYSTATIN
     Dosage: 1 DF, QID
     Route: 061
     Dates: start: 20190816
  8. LORAZEPAM. [Concomitant]
     Active Substance: LORAZEPAM
     Dosage: 1 DF, EVERY 6 HOURS AS NEEDED
     Route: 048
     Dates: start: 20190816
  9. OMEPRAZOLE. [Concomitant]
     Active Substance: OMEPRAZOLE
     Dosage: 1 DF, QD
     Route: 048
     Dates: start: 20190910
  10. NORMAL SALINE [Concomitant]
     Active Substance: SODIUM CHLORIDE
     Indication: FLUSHING
     Dosage: 0.90 %, UNK
     Route: 042
     Dates: start: 20190911

REACTIONS (1)
  - Hernia repair [Unknown]

NARRATIVE: CASE EVENT DATE: 20191008
